FAERS Safety Report 15264805 (Version 3)
Quarter: 2018Q3

REPORT INFORMATION
  Report Type: Spontaneous
  Country: JP (occurrence: JP)
  Receive Date: 20180810
  Receipt Date: 20180920
  Transmission Date: 20181010
  Serious: Yes (Hospitalization)
  Sender: FDA-Public Use
  Company Number: JP-JNJFOC-20180810163

PATIENT
  Age: 63 Year
  Sex: Male

DRUGS (5)
  1. GONAX [Suspect]
     Active Substance: DEGARELIX
     Indication: PROSTATE CANCER
     Route: 065
  2. INSULIN HUMAN [Concomitant]
     Active Substance: INSULIN HUMAN
     Route: 065
  3. ZYTIGA [Suspect]
     Active Substance: ABIRATERONE ACETATE
     Indication: PROSTATE CANCER
     Route: 048
     Dates: start: 20180309
  4. CASODEX [Suspect]
     Active Substance: BICALUTAMIDE
     Indication: PROSTATE CANCER
     Route: 048
  5. PREDNISOLONE. [Suspect]
     Active Substance: PREDNISOLONE
     Indication: PROSTATE CANCER
     Route: 065
     Dates: start: 20180309

REACTIONS (1)
  - Diabetes mellitus [Recovering/Resolving]

NARRATIVE: CASE EVENT DATE: 20180804
